FAERS Safety Report 4921289-6 (Version None)
Quarter: 2006Q1

REPORT INFORMATION
  Report Type: 
  Country: None (occurrence: None)
  Receive Date: 20060221
  Receipt Date: 20060210
  Transmission Date: 20060701
  Serious: Yes (Hospitalization, Other)
  Sender: FDA-Public Use
  Company Number: 2005165192

PATIENT
  Age: 57 Year
  Sex: Female
  Weight: 64.5 kg

DRUGS (2)
  1. GABAPENTIN [Suspect]
     Indication: CERVICAL ROOT PAIN
     Dosage: 1200 MG (600 MG, 2 IN 1 D)
  2. GABAPENTIN [Suspect]
     Indication: NEURALGIA
     Dosage: 1200 MG (600 MG, 2 IN 1 D)

REACTIONS (5)
  - BACK PAIN [None]
  - DRUG WITHDRAWAL SYNDROME [None]
  - GRAND MAL CONVULSION [None]
  - INAPPROPRIATE SCHEDULE OF DRUG ADMINISTRATION [None]
  - TREATMENT NONCOMPLIANCE [None]
